FAERS Safety Report 4745898-2 (Version None)
Quarter: 2005Q3

REPORT INFORMATION
  Report Type: 
  Country: None (occurrence: None)
  Receive Date: 20050816
  Receipt Date: 20050801
  Transmission Date: 20060218
  Serious: Yes (Other)
  Sender: FDA-Public Use
  Company Number: GBWYE876102AUG05

PATIENT
  Age: 59 Year
  Sex: Female

DRUGS (1)
  1. ENBREL [Suspect]
     Indication: RHEUMATOID ARTHRITIS
     Route: 058
     Dates: start: 20030601

REACTIONS (4)
  - CELLULITIS [None]
  - KERATITIS [None]
  - LOWER RESPIRATORY TRACT INFECTION [None]
  - PHARYNGITIS [None]
